FAERS Safety Report 18888747 (Version 7)
Quarter: 2021Q2

REPORT INFORMATION
  Report Type: Spontaneous
  Country: CA (occurrence: CA)
  Receive Date: 20210212
  Receipt Date: 20210624
  Transmission Date: 20210717
  Serious: Yes (Hospitalization, Disabling, Other)
  Sender: FDA-Public Use
  Company Number: CA-PFIZER INC-2021107133

PATIENT
  Age: 55 Year
  Sex: Male
  Weight: 74 kg

DRUGS (24)
  1. RUXIENCE [Suspect]
     Active Substance: RITUXIMAB-PVVR
     Dosage: 715 MG, WEEKLY FOR 4 WEEKS
     Route: 042
     Dates: start: 20210219
  2. RUXIENCE [Suspect]
     Active Substance: RITUXIMAB-PVVR
     Dosage: 715 MG, WEEKLY FOR 4 WEEKS
     Route: 042
     Dates: start: 20210305
  3. ACETAMINOPHEN. [Concomitant]
     Active Substance: ACETAMINOPHEN
     Indication: PREMEDICATION
     Dosage: 650 MG, SINGLE
     Dates: start: 20210201, end: 20210201
  4. DILANTIN [Concomitant]
     Active Substance: PHENYTOIN
     Dosage: UNK
  5. RUXIENCE [Suspect]
     Active Substance: RITUXIMAB-PVVR
     Indication: GRANULOMATOSIS WITH POLYANGIITIS
     Dosage: 715 MG, WEEKLY FOR 4 WEEKS
     Route: 042
     Dates: start: 20210201
  6. ALPRAZOLAM. [Concomitant]
     Active Substance: ALPRAZOLAM
     Dosage: UNK
  7. MYCOPHENOLATE [Concomitant]
     Active Substance: MYCOPHENOLIC ACID
     Dosage: UNK
  8. MYCOPHENOLATE [Concomitant]
     Active Substance: MYCOPHENOLIC ACID
     Dosage: DOSAGE UNKNOWN
  9. RUXIENCE [Suspect]
     Active Substance: RITUXIMAB-PVVR
     Dosage: 715 MG, WEEKLY FOR 4 WEEKS
     Route: 042
     Dates: start: 20210219
  10. DULOXETINE. [Concomitant]
     Active Substance: DULOXETINE
     Dosage: DOSAGE UNKNOWN
     Route: 065
  11. RUXIENCE [Suspect]
     Active Substance: RITUXIMAB-PVVR
     Dosage: 715 MG, WEEKLY FOR 4 WEEKS
     Route: 042
     Dates: start: 20210226
  12. ALENDRONATE [Concomitant]
     Active Substance: ALENDRONATE SODIUM
     Dosage: UNK
  13. VITAMIN D [VITAMIN D NOS] [Concomitant]
     Active Substance: VITAMIN D NOS
     Dosage: UNK
  14. RUXIENCE [Suspect]
     Active Substance: RITUXIMAB-PVVR
     Dosage: 715 MG, WEEKLY FOR 4 WEEKS
     Route: 042
     Dates: start: 20210201
  15. RUXIENCE [Suspect]
     Active Substance: RITUXIMAB-PVVR
     Dosage: 715 MG, WEEKLY FOR 4 WEEKS
     Route: 042
     Dates: start: 20210305
  16. BRIVLERA [Concomitant]
     Active Substance: BRIVARACETAM
     Dosage: UNK
     Route: 065
  17. CALCIUM [Concomitant]
     Active Substance: CALCIUM
     Dosage: UNK
  18. DIPHENHYDRAMINE. [Concomitant]
     Active Substance: DIPHENHYDRAMINE
     Indication: PREMEDICATION
     Dosage: 50 MG, SINGLE
     Dates: start: 20210201, end: 20210201
  19. MYCOPHENOLATE [Concomitant]
     Active Substance: MYCOPHENOLIC ACID
     Dosage: DOSAGE UNKNOWN
  20. DILANTIN [Concomitant]
     Active Substance: PHENYTOIN
     Dosage: DOSAGE UNKNOWN
  21. PREGABALIN. [Concomitant]
     Active Substance: PREGABALIN
     Dosage: DOSAGE UNKNOWN
     Route: 065
  22. TADALAFIL. [Concomitant]
     Active Substance: TADALAFIL
     Dosage: UNK
  23. DILANTIN [Concomitant]
     Active Substance: PHENYTOIN
     Dosage: DOSAGE UNKNOWN
  24. SOLU?MEDROL [Concomitant]
     Active Substance: METHYLPREDNISOLONE SODIUM SUCCINATE
     Indication: PREMEDICATION
     Dosage: 100 MG, SINGLE
     Dates: start: 20210201, end: 20210201

REACTIONS (11)
  - Bladder disorder [Not Recovered/Not Resolved]
  - Contusion [Recovering/Resolving]
  - Quality of life decreased [Not Recovered/Not Resolved]
  - Hip fracture [Recovering/Resolving]
  - Off label use [Unknown]
  - Urine output increased [Not Recovered/Not Resolved]
  - Blood pressure fluctuation [Unknown]
  - Intentional product use issue [Unknown]
  - Rectal discharge [Not Recovered/Not Resolved]
  - Headache [Unknown]
  - Fall [Recovering/Resolving]

NARRATIVE: CASE EVENT DATE: 202102
